FAERS Safety Report 6286323-2 (Version None)
Quarter: 2009Q3

REPORT INFORMATION
  Report Type: 
  Country: None (occurrence: None)
  Receive Date: 20090728
  Receipt Date: 20080805
  Transmission Date: 20100115
  Serious: No
  Sender: FDA-Public Use
  Company Number: US-TYCO HEALTHCARE/MALLINCKRODT-T200801256

PATIENT

DRUGS (1)
  1. ACETAMINOPHEN AND HYDROCODONE BITARTRATE [Suspect]
     Dosage: 10/325 MG, UNK
     Dates: start: 20080728

REACTIONS (2)
  - DIARRHOEA [None]
  - NAUSEA [None]
